FAERS Safety Report 18218753 (Version 2)
Quarter: 2020Q3

REPORT INFORMATION
  Report Type: Spontaneous
  Country: US (occurrence: US)
  Receive Date: 20200901
  Receipt Date: 20200920
  Transmission Date: 20201103
  Serious: Yes (Hospitalization)
  Sender: FDA-Public Use
  Company Number: US-TEVA-2020-US-1821447

PATIENT
  Age: 20 Month
  Sex: Female

DRUGS (6)
  1. PREDNISOLONE. [Suspect]
     Active Substance: PREDNISOLONE
     Indication: HEPATIC ENZYME INCREASED
     Dosage: 2 MG/KG DAILY; ONE DAY BEFORE ONASEMNOGENE ABEPARVOVEC, ON THE DAY OF INFUSION, AND FOR 2 DAYS AFTER
     Route: 048
  2. VITAMIN K [Suspect]
     Active Substance: PHYTONADIONE
     Indication: INTERNATIONAL NORMALISED RATIO INCREASED
     Route: 065
  3. PREDNISOLONE. [Suspect]
     Active Substance: PREDNISOLONE
     Dosage: 1 MG/KG DAILY; UNTIL DAY 14
     Route: 048
  4. PREDNISOLONE. [Suspect]
     Active Substance: PREDNISOLONE
     Dosage: 2 MG/KG DAILY;
     Route: 048
  5. NUSINERSEN [Suspect]
     Active Substance: NUSINERSEN
     Indication: SPINAL MUSCULAR ATROPHY
     Dosage: RECEIVED 8 DOSES
     Route: 065
  6. AVXS?101 [Suspect]
     Active Substance: ONASEMNOGENE ABEPARVOVEC
     Indication: SPINAL MUSCULAR ATROPHY
     Dosage: 57.8ML OF 1.1 X 10 14 VECTOR GENOMES PER KILOGRAM OF BODY WEIGHT; 11.55 X 10 14 VG
     Route: 050

REACTIONS (4)
  - Encephalopathy [Unknown]
  - Subacute hepatic failure [Recovered/Resolved]
  - International normalised ratio increased [Recovering/Resolving]
  - Drug ineffective [Unknown]
